FAERS Safety Report 5284917-4 (Version None)
Quarter: 2007Q1

REPORT INFORMATION
  Report Type: 
  Country: None (occurrence: None)
  Receive Date: 20061229
  Receipt Date: 20061003
  Transmission Date: 20070707
  Serious: Yes (Other)
  Sender: FDA-Public Use
  Company Number: PHEH2006US11580

PATIENT
  Age: 53 Year
  Sex: Male
  Weight: 144.2 kg

DRUGS (15)
  1. CLOZARIL [Suspect]
     Indication: SCHIZOPHRENIA
     Dosage: 500 MG, QHS
     Dates: start: 19920101
  2. EFFEXOR XR [Concomitant]
  3. HALDOL [Concomitant]
  4. COLACE (DOCUSATE SODIUM) [Concomitant]
  5. HYDROCHLOROTHIAZIDE [Concomitant]
  6. LOTREL [Concomitant]
  7. ASPIRIN [Concomitant]
  8. NEXIUM [Concomitant]
  9. NIACIN [Concomitant]
  10. CARDURA /IRE/ (DOXAZOSIN MESILATE) [Concomitant]
  11. TENORMIN [Concomitant]
  12. GLUCOPHAGE [Concomitant]
  13. LANTUS [Concomitant]
  14. NOVOLIN N [Concomitant]
  15. INSULIN [Concomitant]

REACTIONS (1)
  - EOSINOPHIL COUNT INCREASED [None]
